FAERS Safety Report 16132721 (Version 1)
Quarter: 2019Q1

REPORT INFORMATION
  Report Type: Spontaneous
  Country: IL (occurrence: IL)
  Receive Date: 20190329
  Receipt Date: 20190329
  Transmission Date: 20190418
  Serious: Yes (Life-Threatening, Hospitalization)
  Sender: FDA-Public Use
  Company Number: IL-ROCHE-2289493

PATIENT
  Age: 35 Year
  Sex: Female

DRUGS (4)
  1. ASPRIN [Suspect]
     Active Substance: ASPIRIN
     Indication: THROMBOSIS PROPHYLAXIS
     Route: 065
  2. OMALIZUMAB. [Suspect]
     Active Substance: OMALIZUMAB
     Indication: PRODUCT USED FOR UNKNOWN INDICATION
     Route: 065
  3. ASPRIN [Suspect]
     Active Substance: ASPIRIN
     Dosage: 100 MG/D
     Route: 065
  4. ASPRIN [Suspect]
     Active Substance: ASPIRIN
     Dosage: 50 MG/D
     Route: 065

REACTIONS (9)
  - Arteriospasm coronary [Unknown]
  - Cardiogenic shock [Unknown]
  - Aspirin-exacerbated respiratory disease [Recovered/Resolved]
  - Arteriovenous fistula [Unknown]
  - Rhinorrhoea [Recovered/Resolved]
  - Sneezing [Recovered/Resolved]
  - Drug ineffective [Unknown]
  - Chronic sinusitis [Recovering/Resolving]
  - Back pain [Recovered/Resolved]
